FAERS Safety Report 22074512 (Version 1)
Quarter: 2023Q1

REPORT INFORMATION
  Report Type: Spontaneous
  Country: US (occurrence: None)
  Receive Date: 20230308
  Receipt Date: 20230308
  Transmission Date: 20230417
  Serious: No
  Sender: FDA-Public Use
  Company Number: None

PATIENT

DRUGS (2)
  1. METHYLPREDNISOLONE SODIUM SUCCINATE [Suspect]
     Active Substance: METHYLPREDNISOLONE SODIUM SUCCINATE
     Dosage: OTHER ROUTE : INTRAMUSCULAR OR IV ONLY;?
     Route: 050
  2. METHYLPREDNISOLONE ACETATE [Suspect]
     Active Substance: METHYLPREDNISOLONE ACETATE
     Dosage: OTHER ROUTE : INJECTION ;?
     Route: 050

REACTIONS (3)
  - Product label confusion [None]
  - Product packaging confusion [None]
  - Circumstance or information capable of leading to medication error [None]
